FAERS Safety Report 13839792 (Version 3)
Quarter: 2020Q2

REPORT INFORMATION
  Report Type: Spontaneous
  Country: FR (occurrence: FR)
  Receive Date: 20170807
  Receipt Date: 20200612
  Transmission Date: 20200713
  Serious: Yes (Disabling)
  Sender: FDA-Public Use
  Company Number: FR-JNJFOC-20170803227

PATIENT
  Age: 75 Year
  Sex: Male

DRUGS (7)
  1. VIDEX [Suspect]
     Active Substance: DIDANOSINE
     Indication: HIV TEST POSITIVE
     Dosage: ON MORNING
     Route: 048
     Dates: start: 2004, end: 20170906
  2. NORVIR [Suspect]
     Active Substance: RITONAVIR
     Indication: HIV TEST POSITIVE
     Dosage: IN MORNING AND EVENING
     Route: 048
     Dates: start: 20060606
  3. LEVOCARNITINE. [Suspect]
     Active Substance: LEVOCARNITINE
     Indication: SUPPLEMENTATION THERAPY
     Route: 065
  4. BACTRIM [Concomitant]
     Active Substance: SULFAMETHOXAZOLE\TRIMETHOPRIM
     Route: 048
     Dates: start: 20120404
  5. LEDERFOLINE [Concomitant]
     Active Substance: LEUCOVORIN CALCIUM
     Route: 048
     Dates: start: 200304
  6. ISENTRESS [Suspect]
     Active Substance: RALTEGRAVIR POTASSIUM
     Indication: HIV TEST POSITIVE
     Route: 048
     Dates: start: 2004
  7. PREZISTA [Suspect]
     Active Substance: DARUNAVIR ETHANOLATE
     Indication: HIV TEST POSITIVE
     Route: 048
     Dates: start: 20130626

REACTIONS (2)
  - Eyelid ptosis [Recovered/Resolved]
  - Carnitine deficiency [Unknown]

NARRATIVE: CASE EVENT DATE: 201603
